FAERS Safety Report 17675708 (Version 1)
Quarter: 2020Q2

REPORT INFORMATION
  Report Type: Spontaneous
  Country: US (occurrence: US)
  Receive Date: 20200416
  Receipt Date: 20200416
  Transmission Date: 20200714
  Serious: Yes (Hospitalization, Other)
  Sender: FDA-Public Use
  Company Number: US-MICRO LABS LIMITED-ML2020-01294

PATIENT
  Age: 3 Year
  Sex: Female

DRUGS (1)
  1. DIPHENHYDRAMINE HYDROCHLORIDE. [Suspect]
     Active Substance: DIPHENHYDRAMINE HYDROCHLORIDE
     Dosage: APPROXIMATELY 120-180 ML, POTENTIAL DOSE OF 16-25 MG/KG
     Route: 048

REACTIONS (9)
  - Tachycardia [Recovering/Resolving]
  - Hallucination, visual [Unknown]
  - Screaming [Unknown]
  - Toxicity to various agents [Recovering/Resolving]
  - Agitation [Unknown]
  - Overdose [Unknown]
  - Flushing [Recovering/Resolving]
  - Tremor [Unknown]
  - Mydriasis [Unknown]
